FAERS Safety Report 23784243 (Version 2)
Quarter: 2024Q2

REPORT INFORMATION
  Report Type: Spontaneous
  Country: CN (occurrence: CN)
  Receive Date: 20240425
  Receipt Date: 20240429
  Transmission Date: 20240716
  Serious: Yes (Hospitalization)
  Sender: FDA-Public Use
  Company Number: CN-PFIZER INC-PV202400052279

PATIENT
  Age: 69 Year
  Sex: Female
  Weight: 50 kg

DRUGS (5)
  1. DALTEPARIN SODIUM [Suspect]
     Active Substance: DALTEPARIN SODIUM
     Indication: Diabetes mellitus
     Dosage: 10 MG, 1X/DAY
     Route: 048
     Dates: start: 20240308, end: 20240406
  2. PIOGLITAZONE HYDROCHLORIDE AND METFORMIN HYDROCHLORIDE [Suspect]
     Active Substance: METFORMIN HYDROCHLORIDE\PIOGLITAZONE HYDROCHLORIDE
     Indication: Diabetes mellitus
     Dosage: 15 MG/500MG, 2X/DAY
     Route: 048
     Dates: start: 20240308, end: 20240406
  3. GLIMEPIRIDE [Suspect]
     Active Substance: GLIMEPIRIDE
     Indication: Diabetes mellitus
     Dosage: 2 MG, 1X/DAY
     Route: 048
     Dates: start: 20240308, end: 20240406
  4. ACARBOSE [Suspect]
     Active Substance: ACARBOSE
     Indication: Diabetes mellitus
     Dosage: 50 MG, 3X/DAY
     Route: 048
     Dates: start: 20240308, end: 20240406
  5. DAPAGLIFLOZIN [Suspect]
     Active Substance: DAPAGLIFLOZIN
     Indication: Diabetes mellitus
     Dosage: 10 MG, DAILY
     Route: 048

REACTIONS (3)
  - Hypoglycaemia [Recovering/Resolving]
  - Dyspnoea [Recovering/Resolving]
  - Gastroenteritis [Recovering/Resolving]

NARRATIVE: CASE EVENT DATE: 20240406
